FAERS Safety Report 15814072 (Version 1)
Quarter: 2019Q1

REPORT INFORMATION
  Report Type: Spontaneous
  Country: US (occurrence: US)
  Receive Date: 20190111
  Receipt Date: 20190111
  Transmission Date: 20190417
  Serious: No
  Sender: FDA-Public Use
  Company Number: US-JAZZ-2018-US-001437

PATIENT
  Sex: Male
  Weight: 108.84 kg

DRUGS (15)
  1. PRIALT [Suspect]
     Active Substance: ZICONOTIDE ACETATE
     Indication: PRODUCT USED FOR UNKNOWN INDICATION
     Dosage: 0.241 ?G, QH
     Route: 037
     Dates: start: 20151001
  2. BACLOFEN. [Suspect]
     Active Substance: BACLOFEN
     Dosage: 4.17 ?G, QH
     Route: 037
     Dates: start: 20170622
  3. PRIALT [Suspect]
     Active Substance: ZICONOTIDE ACETATE
     Dosage: 0.167 ?G, QH
     Route: 037
     Dates: start: 20170817
  4. BACLOFEN. [Suspect]
     Active Substance: BACLOFEN
     Dosage: 12.5 ?G, QH
     Route: 037
     Dates: start: 20170817
  5. BACLOFEN. [Suspect]
     Active Substance: BACLOFEN
     Dosage: 4.178 ?G, QH
     Route: 037
     Dates: start: 20171011
  6. BACLOFEN. [Suspect]
     Active Substance: BACLOFEN
     Dosage: 5.83 ?G, QH
     Route: 037
     Dates: start: 20170922
  7. PRIALT [Suspect]
     Active Substance: ZICONOTIDE ACETATE
     Dosage: 0.209 ?G, QH
     Route: 037
     Dates: start: 20171011
  8. BACLOFEN. [Suspect]
     Active Substance: BACLOFEN
     Indication: PRODUCT USED FOR UNKNOWN INDICATION
     Dosage: 4.585 ?G, QH
     Dates: start: 20151001
  9. HYDROMORPHONE [Suspect]
     Active Substance: HYDROMORPHONE
     Dosage: 0.877 ?G, QH
     Route: 037
     Dates: start: 20171011
  10. PRIALT [Suspect]
     Active Substance: ZICONOTIDE ACETATE
     Dosage: 0.139 ?G, QH
     Route: 037
     Dates: start: 20170622
  11. HYDROMORPHONE [Suspect]
     Active Substance: HYDROMORPHONE
     Dosage: 0.694 ?G, QH
     Route: 037
     Dates: start: 20170622
  12. HYDROMORPHONE [Suspect]
     Active Substance: HYDROMORPHONE
     Indication: PRODUCT USED FOR UNKNOWN INDICATION
     Dosage: 0.724 ?G, QH
     Route: 037
     Dates: start: 20151001
  13. HYDROMORPHONE [Suspect]
     Active Substance: HYDROMORPHONE
     Dosage: 0.833 ?G, QH
     Route: 037
     Dates: start: 20170817
  14. PRIALT [Suspect]
     Active Substance: ZICONOTIDE ACETATE
     Dosage: 0.194 ?G, QH
     Route: 037
     Dates: start: 20170922
  15. HYDROMORPHONE [Suspect]
     Active Substance: HYDROMORPHONE
     Dosage: 0.972 ?G, QH
     Route: 037
     Dates: start: 20170922

REACTIONS (2)
  - Drug ineffective [Recovered/Resolved]
  - Device issue [Unknown]
